FAERS Safety Report 11674459 (Version 1)
Quarter: 2015Q4

REPORT INFORMATION
  Report Type: Spontaneous
  Country: US (occurrence: US)
  Receive Date: 20151028
  Receipt Date: 20151028
  Transmission Date: 20160304
  Serious: No
  Sender: FDA-Public Use
  Company Number: PHEH2015US021502

PATIENT
  Age: 80 Year
  Sex: Male

DRUGS (1)
  1. ENTRESTO [Suspect]
     Active Substance: SACUBITRIL\VALSARTAN
     Indication: PRODUCT USED FOR UNKNOWN INDICATION
     Dosage: 50 MG, BID
     Route: 048
     Dates: start: 20151008

REACTIONS (6)
  - Fall [Unknown]
  - Weight increased [Unknown]
  - Limb injury [Unknown]
  - Dizziness [Unknown]
  - Skin abrasion [Unknown]
  - Hypotension [Unknown]

NARRATIVE: CASE EVENT DATE: 20151008
